FAERS Safety Report 4308102-5 (Version None)
Quarter: 2004Q1

REPORT INFORMATION
  Report Type: 
  Country: None (occurrence: None)
  Receive Date: 20040301
  Receipt Date: 20030508
  Transmission Date: 20041129
  Serious: No
  Sender: FDA-Public Use
  Company Number: US-BRISTOL-MYERS SQUIBB COMPANY-12273561

PATIENT
  Age: 56 Year
  Sex: Female
  Weight: 90 kg

DRUGS (8)
  1. GLUCOPHAGE [Suspect]
     Indication: DIABETES MELLITUS
     Route: 048
     Dates: start: 20020101, end: 20020101
  2. WELLBUTRIN [Concomitant]
  3. SPIRONOLACTONE [Concomitant]
  4. PRECOSE [Concomitant]
  5. PROPRANOLOL [Concomitant]
  6. PREVACID [Concomitant]
  7. HUMULIN N [Concomitant]
  8. HUMULIN R [Concomitant]

REACTIONS (2)
  - BLOOD GLUCOSE INCREASED [None]
  - VOMITING [None]
